FAERS Safety Report 9669264 (Version 1)
Quarter: 2013Q4

REPORT INFORMATION
  Report Type: Spontaneous
  Country: NZ (occurrence: NZ)
  Receive Date: 20131105
  Receipt Date: 20131105
  Transmission Date: 20140711
  Serious: Yes (Life-Threatening, Hospitalization, Other)
  Sender: FDA-Public Use
  Company Number: NZ-ASTRAZENECA-2013SE80576

PATIENT
  Sex: Male

DRUGS (2)
  1. BRILINTA [Suspect]
     Route: 048
     Dates: start: 20130926
  2. HEPARIN [Concomitant]
     Dates: start: 20130926

REACTIONS (8)
  - Bradycardia [Unknown]
  - Circulatory collapse [Unknown]
  - Rhythm idioventricular [Unknown]
  - Atrioventricular block complete [Unknown]
  - Atrioventricular block second degree [Unknown]
  - Arrhythmia [Unknown]
  - Loss of consciousness [Unknown]
  - Nausea [Unknown]
